FAERS Safety Report 6110515-6 (Version None)
Quarter: 2009Q1

REPORT INFORMATION
  Report Type: 
  Country: None (occurrence: None)
  Receive Date: 20090310
  Receipt Date: 20090302
  Transmission Date: 20090719
  Serious: Yes (Life-Threatening, Hospitalization)
  Sender: FDA-Public Use
  Company Number: US-ABBOTT-08P-163-0491280-02

PATIENT
  Sex: Female
  Weight: 59 kg

DRUGS (33)
  1. HUMIRA [Suspect]
     Indication: RHEUMATOID ARTHRITIS
     Route: 058
     Dates: start: 20001103, end: 20080616
  2. CALCIUM [Concomitant]
     Indication: MINERAL SUPPLEMENTATION
     Route: 048
     Dates: start: 19980104
  3. AMITRIPTYLINE [Concomitant]
     Indication: INSOMNIA
     Route: 048
     Dates: start: 19990402
  4. AMLODIPINE BESYLATE [Concomitant]
     Indication: HYPERTENSION
     Route: 048
     Dates: start: 19990601
  5. GLUCOSAMINE [Concomitant]
     Indication: SUPPLEMENTATION THERAPY
     Route: 048
     Dates: start: 20011201
  6. ISORDIL [Concomitant]
     Indication: ANGINA PECTORIS
     Route: 048
     Dates: start: 20050101
  7. FLOVENT [Concomitant]
     Indication: ASTHMA
     Route: 045
     Dates: start: 20030214
  8. VENTOLIN [Concomitant]
     Indication: ASTHMA
     Route: 045
     Dates: start: 20030214
  9. THEOPHYLLINE [Concomitant]
     Indication: ASTHMA
     Route: 048
     Dates: start: 20030801
  10. DIAZIDE [Concomitant]
     Indication: HYPERTENSION
     Dosage: 375/25 MG
     Route: 048
     Dates: start: 20030901
  11. ALTACE [Concomitant]
     Indication: PROPHYLAXIS
     Route: 048
     Dates: start: 20030901
  12. ASPIRIN [Concomitant]
     Indication: CARDIOVASCULAR EVENT PROPHYLAXIS
     Route: 048
     Dates: start: 20010901
  13. ACIPHEX [Concomitant]
     Indication: DYSPEPSIA
     Route: 048
     Dates: start: 20040301
  14. PRAVACHOL [Concomitant]
     Indication: HYPERTENSION
     Route: 048
     Dates: start: 20051101
  15. THYROID TAB [Concomitant]
     Indication: HYPOTHYROIDISM
     Route: 048
     Dates: start: 20041201
  16. PLAVIX [Concomitant]
     Indication: CEREBROVASCULAR ACCIDENT PROPHYLAXIS
     Route: 048
     Dates: start: 20011018
  17. RESIDRONATE [Concomitant]
     Indication: OSTEOPOROSIS
     Route: 048
     Dates: start: 20011102
  18. ATENOLOL [Concomitant]
     Indication: HYPERTENSION
     Route: 048
     Dates: start: 20001211
  19. CELESTONE SOLUSPAN [Concomitant]
     Indication: BACK PAIN
     Dates: start: 20070227, end: 20070227
  20. CELESTONE SOLUSPAN [Concomitant]
     Dates: start: 20080212, end: 20080212
  21. SYNVISC [Concomitant]
     Indication: ARTHRALGIA
     Route: 014
     Dates: start: 20060919, end: 20061003
  22. SYNVISC [Concomitant]
     Route: 014
     Dates: start: 20080214, end: 20080214
  23. HYALGAN [Concomitant]
     Indication: ARTHRALGIA
     Route: 014
     Dates: start: 20070110, end: 20070207
  24. HYALGAN [Concomitant]
     Route: 048
     Dates: start: 20070801, end: 20070801
  25. ZITHROMYCIN [Concomitant]
     Indication: BRONCHITIS
     Route: 048
     Dates: start: 20070422, end: 20070426
  26. ZITHROMYCIN [Concomitant]
     Route: 048
     Dates: start: 20070527, end: 20070531
  27. FOLIC ACID [Concomitant]
     Indication: RHEUMATOID ARTHRITIS
     Route: 048
     Dates: start: 19931001, end: 20070323
  28. VICODIN [Concomitant]
     Indication: RHEUMATOID ARTHRITIS
     Route: 048
     Dates: start: 20011201
  29. DARVON [Concomitant]
     Indication: RHEUMATOID ARTHRITIS
     Route: 048
     Dates: start: 20011201
  30. NAPROSYN [Concomitant]
     Indication: RHEUMATOID ARTHRITIS
     Route: 048
     Dates: start: 20030214
  31. LIMBREL [Concomitant]
     Indication: RHEUMATOID ARTHRITIS
     Route: 048
     Dates: start: 20070801, end: 20080220
  32. METHOTREXATE [Concomitant]
     Indication: RHEUMATOID ARTHRITIS
     Route: 048
     Dates: start: 20050101, end: 20060621
  33. METHOTREXATE [Concomitant]
     Route: 048
     Dates: start: 20060621

REACTIONS (3)
  - CHRONIC OBSTRUCTIVE PULMONARY DISEASE [None]
  - NON-CARDIAC CHEST PAIN [None]
  - PNEUMONIA [None]
